FAERS Safety Report 8938371 (Version 1)
Quarter: 2012Q4

REPORT INFORMATION
  Report Type: 
  Country: AR (occurrence: AR)
  Receive Date: 20121203
  Receipt Date: 20121203
  Transmission Date: 20130627
  Serious: Yes (Death)
  Sender: FDA-Public Use
  Company Number: PHHY2012AR109707

PATIENT
  Sex: Male

DRUGS (1)
  1. ONBREZ [Suspect]
     Indication: PULMONARY FIBROSIS
     Dosage: 150 ug, QD

REACTIONS (2)
  - Death [Fatal]
  - Off label use [Unknown]
